FAERS Safety Report 10224143 (Version 1)
Quarter: 2014Q2

REPORT INFORMATION
  Report Type: Spontaneous
  Country: GR (occurrence: GR)
  Receive Date: 20140609
  Receipt Date: 20140609
  Transmission Date: 20141212
  Serious: Yes (Other)
  Sender: FDA-Public Use
  Company Number: PHHY2014GR067987

PATIENT
  Age: 90 Year
  Sex: Male

DRUGS (6)
  1. EXELON PATCH [Suspect]
     Dosage: 9.5 MG/24 HOURS (PATCH 10 CM2 DAILY)
     Route: 062
  2. PLAVIX [Concomitant]
     Dosage: UNK UKN, UNK
  3. ADALAT [Concomitant]
     Dosage: UNK UKN, UNK
  4. TENORMIN [Concomitant]
     Dosage: UNK UKN, UNK
  5. ZYLORIC [Concomitant]
     Dosage: UNK UKN, UNK
  6. GINKO BILOBA [Concomitant]
     Dosage: UNK UKN, UNK

REACTIONS (7)
  - Head injury [Unknown]
  - Haematoma [Recovering/Resolving]
  - Dizziness [Unknown]
  - Fall [Unknown]
  - Incorrect drug administration duration [Unknown]
  - Dyspnoea [Unknown]
  - Vomiting [Unknown]
